FAERS Safety Report 16579660 (Version 4)
Quarter: 2020Q3

REPORT INFORMATION
  Report Type: Report from Study
  Country: None (occurrence: HU)
  Receive Date: 20190716
  Receipt Date: 20200721
  Transmission Date: 20201102
  Serious: Yes (Hospitalization)
  Sender: FDA-Public Use
  Company Number: HU-ABBVIE-19P-076-2850192-00

PATIENT
  Age: 70 Year
  Sex: Male
  Weight: 89 kg

DRUGS (5)
  1. DUODOPA [Suspect]
     Active Substance: CARBIDOPA\LEVODOPA
     Route: 050
     Dates: start: 20161201, end: 20190516
  2. QUETIAPIN [Concomitant]
     Active Substance: QUETIAPINE
     Indication: HALLUCINATION
     Route: 048
     Dates: start: 20171212
  3. DUODOPA [Suspect]
     Active Substance: CARBIDOPA\LEVODOPA
     Indication: PARKINSON^S DISEASE
     Dosage: TITRATION:MD: 10.4 ML CD: 3.2 ML/H, ED: 1 ML 16 HOURS ADMINISTRATION
     Route: 050
     Dates: start: 20161107, end: 20161110
  4. DUODOPA [Suspect]
     Active Substance: CARBIDOPA\LEVODOPA
     Dosage: MD: 10.4 ML, CD: 3ML/H, ED: 2ML, 16 HRS ADMINISTRATION
     Route: 050
     Dates: start: 20190517
  5. MIRVEDOL [Concomitant]
     Indication: COGNITIVE DISORDER
     Route: 048
     Dates: start: 20180606

REACTIONS (4)
  - Fall [Recovered/Resolved]
  - Tibia fracture [Recovered/Resolved]
  - Duodenitis [Recovered/Resolved]
  - Acute psychosis [Recovered/Resolved]

NARRATIVE: CASE EVENT DATE: 20190416
